FAERS Safety Report 8419999-1 (Version None)
Quarter: 2012Q2

REPORT INFORMATION
  Report Type: 
  Country: None (occurrence: None)
  Receive Date: 20120323
  Receipt Date: 20111108
  Transmission Date: 20120825
  Serious: Yes (Hospitalization, Other)
  Sender: FDA-Public Use
  Company Number: 163-21880-11022993

PATIENT
  Age: 58 Year
  Sex: Male
  Weight: 107 kg

DRUGS (12)
  1. RITUXIMAB (RITUXIMAB) [Concomitant]
  2. PAIN MEDICATION (ANALGESICS) [Concomitant]
  3. PREDNISONE TAB [Concomitant]
  4. MULTI-VITAMINS [Concomitant]
  5. MITOXANTRONE [Concomitant]
  6. REVLIMID [Suspect]
  7. FLUDARABINE PHOSPHATE [Concomitant]
  8. REVLIMID [Suspect]
     Indication: CHRONIC LYMPHOCYTIC LEUKAEMIA
     Dosage: 10 MG, 1 IN 1 D, PO ; 5 MG, 1 IN 1 D, PO
     Route: 048
     Dates: start: 20110224, end: 20110224
  9. REVLIMID [Suspect]
     Indication: CHRONIC LYMPHOCYTIC LEUKAEMIA
     Dosage: 10 MG, 1 IN 1 D, PO ; 5 MG, 1 IN 1 D, PO
     Route: 048
     Dates: start: 20110228
  10. DEXAMETHASONE [Concomitant]
  11. SODIUM CHLORIDE [Concomitant]
  12. CYCLOPHOSPHAMIDE [Concomitant]

REACTIONS (1)
  - TUMOUR FLARE [None]
